FAERS Safety Report 5971112-6 (Version None)
Quarter: 2008Q4

REPORT INFORMATION
  Report Type: 
  Country: None (occurrence: None)
  Receive Date: 20081128
  Receipt Date: 20081117
  Transmission Date: 20090506
  Serious: Yes (Hospitalization)
  Sender: FDA-Public Use
  Company Number: GB-ROCHE-597646

PATIENT
  Weight: 70 kg

DRUGS (3)
  1. CAPECITABINE [Suspect]
     Indication: BREAST CANCER
     Dosage: ROUTE, FORM AND DOSING AMOUNT-PER PROTOCOL. PATIENT RECEIVED 4 CYCLES.
     Route: 048
  2. EPIRUBICIN [Suspect]
     Indication: BREAST CANCER
     Dosage: ROUTE, FORM,DOSING AMOUNT AND FREQUENCY-PER PROTOCOL.PATIENT RECEIVED 4 CYCLES.
     Route: 042
  3. NEULASTA [Suspect]
     Indication: BREAST CANCER
     Dosage: PATIENT RECEIVED 4 CYCLES.
     Route: 065

REACTIONS (1)
  - CONVULSION [None]
